FAERS Safety Report 12015088 (Version 1)
Quarter: 2016Q1

REPORT INFORMATION
  Report Type: Spontaneous
  Country: US (occurrence: US)
  Receive Date: 20160205
  Receipt Date: 20160205
  Transmission Date: 20160526
  Serious: No
  Sender: FDA-Public Use
  Company Number: US-AMGEN-USASP2015017067

PATIENT

DRUGS (7)
  1. TAXOTERE [Concomitant]
     Active Substance: DOCETAXEL
     Indication: BREAST CANCER
     Dosage: UNK
     Dates: start: 201411
  2. CYTOXAN [Concomitant]
     Active Substance: CYCLOPHOSPHAMIDE
     Indication: BREAST CANCER
     Dosage: UNK
     Dates: start: 201411
  3. PEPCID [Concomitant]
     Active Substance: FAMOTIDINE
     Dosage: UNK
     Route: 042
  4. NEULASTA [Suspect]
     Active Substance: PEGFILGRASTIM
     Indication: PRODUCT USED FOR UNKNOWN INDICATION
     Dosage: UNK
     Route: 065
  5. ADVIL [Concomitant]
     Active Substance: IBUPROFEN
     Dosage: UNK
  6. BENADRYL [Concomitant]
     Active Substance: DIPHENHYDRAMINE HYDROCHLORIDE
     Dosage: UNK
     Route: 042
  7. CLARITIN [Concomitant]
     Active Substance: LORATADINE
     Dosage: UNK

REACTIONS (5)
  - Nausea [Unknown]
  - Abdominal distension [Unknown]
  - Abdominal pain [Unknown]
  - Eructation [Unknown]
  - Abdominal discomfort [Unknown]
